FAERS Safety Report 22087529 (Version 3)
Quarter: 2023Q4

REPORT INFORMATION
  Report Type: Spontaneous
  Country: US (occurrence: US)
  Receive Date: 20230313
  Receipt Date: 20231018
  Transmission Date: 20240109
  Serious: No
  Sender: FDA-Public Use
  Company Number: US-PHARMAESSENTIA CORPORATION-US-2023-PEC-001016

PATIENT
  Sex: Male

DRUGS (4)
  1. BESREMI [Suspect]
     Active Substance: ROPEGINTERFERON ALFA-2B-NJFT
     Indication: Myeloproliferative neoplasm
     Dosage: 100 MCG, EVERY 14 DAYS
     Route: 058
     Dates: start: 20221210
  2. BESREMI [Suspect]
     Active Substance: ROPEGINTERFERON ALFA-2B-NJFT
     Dosage: 100 MCG
     Route: 058
     Dates: start: 20230108
  3. BESREMI [Suspect]
     Active Substance: ROPEGINTERFERON ALFA-2B-NJFT
     Dosage: 100 MCG
     Route: 058
     Dates: start: 20230122
  4. BESREMI [Suspect]
     Active Substance: ROPEGINTERFERON ALFA-2B-NJFT
     Dosage: UNK
     Route: 065

REACTIONS (7)
  - Laboratory test abnormal [Unknown]
  - Peripheral arterial occlusive disease [Unknown]
  - Surgery [Unknown]
  - Abnormal dreams [Not Recovered/Not Resolved]
  - Mood altered [Recovering/Resolving]
  - Muscle spasms [Unknown]
  - Sleep disorder [Unknown]
